FAERS Safety Report 5234422-6 (Version None)
Quarter: 2007Q1

REPORT INFORMATION
  Report Type: 
  Country: None (occurrence: None)
  Receive Date: 20070209
  Receipt Date: 20070129
  Transmission Date: 20070707
  Serious: Yes (Other)
  Sender: FDA-Public Use
  Company Number: HQWYE248320JUL04

PATIENT
  Sex: Female
  Weight: 115.77 kg

DRUGS (1)
  1. PREMPRO [Suspect]
     Indication: HORMONE REPLACEMENT THERAPY

REACTIONS (16)
  - BREAST CANCER METASTATIC [None]
  - CELLULITIS [None]
  - CERVICAL CYST [None]
  - DEEP VEIN THROMBOSIS [None]
  - INTERVERTEBRAL DISC DEGENERATION [None]
  - METASTASES TO BONE [None]
  - METASTASES TO LYMPH NODES [None]
  - OBESITY [None]
  - OESTROGEN RECEPTOR ASSAY POSITIVE [None]
  - OVARIAN CYST [None]
  - PROGESTERONE RECEPTOR ASSAY POSITIVE [None]
  - RADIATION SKIN INJURY [None]
  - SCAR [None]
  - SLEEP APNOEA SYNDROME [None]
  - TRANSIENT ISCHAEMIC ATTACK [None]
  - TREATMENT NONCOMPLIANCE [None]
